FAERS Safety Report 8525819-7 (Version None)
Quarter: 2012Q3

REPORT INFORMATION
  Report Type: 
  Country: None (occurrence: None)
  Receive Date: 20120720
  Receipt Date: 20120710
  Transmission Date: 20120928
  Serious: Yes (Other)
  Sender: FDA-Public Use
  Company Number: JP-VERTEX PHARMACEUTICALS INC.-AE-2012-008473

PATIENT
  Age: 50 Year
  Sex: Male

DRUGS (9)
  1. PEG-INTRON [Concomitant]
     Route: 058
     Dates: start: 20120403
  2. TELAVIC (TELAPREVIR) [Suspect]
     Indication: HEPATITIS C
     Route: 048
     Dates: start: 20120220, end: 20120507
  3. MUCOSTA [Concomitant]
     Route: 048
     Dates: start: 20120222
  4. TELAVIC (TELAPREVIR) [Suspect]
     Route: 048
     Dates: start: 20120508, end: 20120515
  5. RIBAVIRIN [Concomitant]
     Indication: HEPATITIS C
     Route: 048
     Dates: start: 20120220, end: 20120416
  6. RIBAVIRIN [Concomitant]
     Route: 048
     Dates: start: 20120417
  7. FAMOTIDINE [Concomitant]
     Route: 048
  8. PEG-INTRON [Concomitant]
     Indication: HEPATITIS C
     Route: 058
     Dates: start: 20120220, end: 20120327
  9. MARZULENE-S [Concomitant]
     Route: 048
     Dates: start: 20120222

REACTIONS (3)
  - HAEMOGLOBIN DECREASED [None]
  - RETINOPATHY [None]
  - WHITE BLOOD CELL COUNT DECREASED [None]
